FAERS Safety Report 8101061-9 (Version None)
Quarter: 2012Q1

REPORT INFORMATION
  Report Type: 
  Country: None (occurrence: None)
  Receive Date: 20120129
  Receipt Date: 20110927
  Transmission Date: 20120608
  Serious: No
  Sender: FDA-Public Use
  Company Number: US-ABBOTT-11P-163-0858690-00

PATIENT
  Sex: Male
  Weight: 64.468 kg

DRUGS (7)
  1. ALPRAZOLAM [Concomitant]
     Indication: ANXIETY
  2. HUMIRA [Suspect]
     Indication: CROHN'S DISEASE
     Route: 058
     Dates: start: 20080101
  3. CODEINE SUL TAB [Concomitant]
     Indication: DIARRHOEA
     Dosage: 6-8 TABS PER DAY
  4. PEPCID AC [Concomitant]
     Indication: GASTROOESOPHAGEAL REFLUX DISEASE
  5. ALPRAZOLAM [Concomitant]
     Indication: ABDOMINAL PAIN UPPER
  6. BUDESONIDE [Concomitant]
     Indication: CROHN'S DISEASE
  7. BUTALBITAL ACETAMINOPHEN AND CAFFEINE [Concomitant]
     Indication: MIGRAINE

REACTIONS (7)
  - FEELING ABNORMAL [None]
  - ARTHRALGIA [None]
  - INJECTION SITE PAIN [None]
  - DIZZINESS [None]
  - NASOPHARYNGITIS [None]
  - INJECTION SITE URTICARIA [None]
  - JOINT INJURY [None]
